FAERS Safety Report 6144551-0 (Version None)
Quarter: 2009Q2

REPORT INFORMATION
  Report Type: 
  Country: None (occurrence: None)
  Receive Date: 20090406
  Receipt Date: 20090324
  Transmission Date: 20091009
  Serious: Yes (Other)
  Sender: FDA-Public Use
  Company Number: PHHY2009TR11161

PATIENT
  Age: 57 Year
  Sex: Female

DRUGS (4)
  1. ZOLEDRONIC ACID [Suspect]
     Indication: BONE PAIN
  2. CALCIUM [Concomitant]
  3. CALCIUM CARBONATE [Concomitant]
     Dosage: 2500 MG, UNK
  4. VITAMIN D3 [Concomitant]
     Dosage: 880 IU, UNK

REACTIONS (6)
  - BLOOD PARATHYROID HORMONE INCREASED [None]
  - BONE PAIN [None]
  - GASTRIC DISORDER [None]
  - HYPERPARATHYROIDISM [None]
  - HYPOCALCAEMIA [None]
  - MUSCLE SPASMS [None]
